FAERS Safety Report 5646868-2 (Version None)
Quarter: 2008Q1

REPORT INFORMATION
  Report Type: 
  Country: None (occurrence: None)
  Receive Date: 20080229
  Receipt Date: 20080229
  Transmission Date: 20080703
  Serious: Yes (Other)
  Sender: FDA-Public Use
  Company Number: None

PATIENT
  Sex: Female
  Weight: 54 kg

DRUGS (1)
  1. ACTONEL [Suspect]
     Dosage: 1 TABLET PER WK

REACTIONS (4)
  - ARTHRITIS [None]
  - BONE PAIN [None]
  - MYALGIA [None]
  - PAIN IN JAW [None]
